FAERS Safety Report 11347452 (Version 1)
Quarter: 2015Q3

REPORT INFORMATION
  Report Type: Spontaneous
  Country: US (occurrence: US)
  Receive Date: 20150803
  Receipt Date: 20150803
  Transmission Date: 20151125
  Serious: No
  Sender: FDA-Public Use
  Company Number: US-ELI_LILLY_AND_COMPANY-US201107000250

PATIENT
  Sex: Male

DRUGS (6)
  1. ZYPREXA [Suspect]
     Active Substance: OLANZAPINE
     Dosage: 25 MG, QD
  2. ZYPREXA [Suspect]
     Active Substance: OLANZAPINE
     Dosage: 5 MG, QD
  3. ZYPREXA [Suspect]
     Active Substance: OLANZAPINE
     Dosage: 2.5 MG, QD
  4. ZYPREXA [Suspect]
     Active Substance: OLANZAPINE
     Dosage: 20 MG, QD
  5. ZYPREXA [Suspect]
     Active Substance: OLANZAPINE
     Indication: SCHIZOPHRENIA
     Dosage: 30 MG, QD
  6. ZYPREXA [Suspect]
     Active Substance: OLANZAPINE
     Dosage: 10 MG, QD

REACTIONS (9)
  - Abdominal discomfort [Unknown]
  - Wrong technique in product usage process [Unknown]
  - Fatigue [Unknown]
  - Overdose [Unknown]
  - Intentional product misuse [Unknown]
  - Anxiety [Unknown]
  - Drug withdrawal syndrome [Unknown]
  - Feeling abnormal [Unknown]
  - Insomnia [Unknown]
